FAERS Safety Report 7045743-9 (Version None)
Quarter: 2010Q4

REPORT INFORMATION
  Report Type: 
  Country: None (occurrence: None)
  Receive Date: 20101014
  Receipt Date: 20101006
  Transmission Date: 20110411
  Serious: Yes (Death, Hospitalization)
  Sender: FDA-Public Use
  Company Number: JP-MERCK-1009USA03081

PATIENT
  Age: 84 Year
  Sex: Female

DRUGS (15)
  1. JANUVIA [Suspect]
     Indication: DIABETES MELLITUS
     Route: 048
     Dates: start: 20100623, end: 20100801
  2. ZYLORIC [Suspect]
     Route: 048
     Dates: start: 20100623, end: 20100801
  3. MYSLEE [Concomitant]
     Route: 048
     Dates: end: 20100801
  4. OMEPRAL [Concomitant]
     Route: 048
     Dates: end: 20100801
  5. MEVALOTIN [Concomitant]
     Route: 048
     Dates: end: 20100801
  6. WARFARIN POTASSIUM [Concomitant]
     Route: 048
     Dates: end: 20100801
  7. AMARYL [Concomitant]
     Dosage: DOSE FREQUENCY UNKNOWN
     Route: 048
     Dates: end: 20100801
  8. MAINTATE [Concomitant]
     Dosage: DOSE FREQUENCY UNKNOWN
     Route: 048
     Dates: end: 20100801
  9. LAC-B [Concomitant]
     Dosage: DOSE FREQUENCY UNKNOWN
     Route: 048
     Dates: end: 20100801
  10. METHYCOBAL [Concomitant]
     Dosage: DOSE FREQUENCY UNKNOWN
     Route: 048
     Dates: end: 20100801
  11. ASPIRIN [Concomitant]
     Route: 048
     Dates: end: 20100801
  12. DIOVAN [Concomitant]
     Route: 048
     Dates: end: 20100801
  13. ALDACTONE [Concomitant]
     Dosage: DOSE FREQUENCY UNKNOWN
     Route: 048
     Dates: end: 20100801
  14. LASIX [Concomitant]
     Dosage: DOSE FREQUENCY UNKNOWN
     Route: 048
     Dates: end: 20100801
  15. CONSTAN [Concomitant]
     Dosage: A DOSE
     Route: 048
     Dates: end: 20100801

REACTIONS (2)
  - DRUG RASH WITH EOSINOPHILIA AND SYSTEMIC SYMPTOMS [None]
  - SEPSIS [None]
